FAERS Safety Report 21337663 (Version 1)
Quarter: 2022Q3

REPORT INFORMATION
  Report Type: Spontaneous
  Country: IN (occurrence: IN)
  Receive Date: 20220915
  Receipt Date: 20220915
  Transmission Date: 20221027
  Serious: Yes (Death, Congenital Anomaly, Other)
  Sender: FDA-Public Use
  Company Number: IN-GILEAD-2022-0597688

PATIENT

DRUGS (3)
  1. VIREAD [Suspect]
     Active Substance: TENOFOVIR DISOPROXIL FUMARATE
     Indication: HIV infection
     Dosage: UNK
     Route: 064
  2. LAMIVUDINE [Concomitant]
     Active Substance: LAMIVUDINE
  3. EFAVIRENZ [Concomitant]
     Active Substance: EFAVIRENZ

REACTIONS (3)
  - Death neonatal [Fatal]
  - Neural tube defect [Unknown]
  - Foetal exposure during pregnancy [Recovered/Resolved]
